FAERS Safety Report 7864228-0 (Version None)
Quarter: 2011Q4

REPORT INFORMATION
  Report Type: 
  Country: None (occurrence: None)
  Receive Date: 20111028
  Receipt Date: 20111024
  Transmission Date: 20120403
  Serious: Yes (Death, Hospitalization)
  Sender: FDA-Public Use
  Company Number: US-PFIZER INC-2010134005

PATIENT
  Sex: Female

DRUGS (14)
  1. PILOCARPINE HYDROCHLORIDE [Concomitant]
  2. SUCRALFATE [Concomitant]
  3. REVATIO [Suspect]
     Indication: PULMONARY HYPERTENSION
     Dosage: 20 MG, 1X/DAY
     Dates: start: 20020901, end: 20100901
  4. ASCORBIC ACID [Concomitant]
  5. ATROPINE SULFATE [Concomitant]
  6. CEVIMELINE [Concomitant]
  7. LOMOTIL [Concomitant]
  8. FLOLAN [Concomitant]
  9. ATIVAN [Concomitant]
  10. LOPERAMIDE HYDROCHLORIDE [Concomitant]
  11. LEVOTHYROXINE SODIUM [Concomitant]
  12. AMICAR [Concomitant]
  13. MORPHINE SULFATE [Concomitant]
  14. PANTOPRAZOLE [Concomitant]

REACTIONS (3)
  - DEATH [None]
  - ANAEMIA [None]
  - GASTROINTESTINAL HAEMORRHAGE [None]
